FAERS Safety Report 10794428 (Version 1)
Quarter: 2015Q1

REPORT INFORMATION
  Report Type: Report from Study
  Country: UG (occurrence: UG)
  Receive Date: 20150213
  Receipt Date: 20150213
  Transmission Date: 20150721
  Serious: Yes (Life-Threatening, Hospitalization, Other)
  Sender: FDA-Public Use
  Company Number: UG-GILEAD-2014-0126150

PATIENT
  Age: 29 Year
  Sex: Male
  Weight: 64 kg

DRUGS (3)
  1. EFAVIRENZ/EMTRICITABINE/TENOFOVIR DISOPROXIL FUMARATE [Suspect]
     Active Substance: EFAVIRENZ\EMTRICITABINE\TENOFOVIR DISOPROXIL FUMARATE
     Indication: HIV INFECTION
     Dosage: 1110 MG, QD
     Route: 048
     Dates: start: 20140409
  2. BLEOMYCIN [Concomitant]
     Active Substance: BLEOMYCIN SULFATE
     Indication: KAPOSI^S SARCOMA
     Dosage: UNK
  3. VINCRISTINE [Concomitant]
     Active Substance: VINCRISTINE
     Indication: KAPOSI^S SARCOMA
     Dosage: UNK

REACTIONS (8)
  - Vomiting [Unknown]
  - Septic shock [Recovered/Resolved]
  - Pyrexia [Unknown]
  - Malaise [Unknown]
  - Peripheral swelling [Unknown]
  - Cough [Unknown]
  - Dyspnoea [Unknown]
  - Skin hyperpigmentation [Unknown]

NARRATIVE: CASE EVENT DATE: 20131101
